FAERS Safety Report 24828017 (Version 1)
Quarter: 2025Q1

REPORT INFORMATION
  Report Type: Spontaneous
  Country: AE (occurrence: US)
  Receive Date: 20250109
  Receipt Date: 20250109
  Transmission Date: 20250408
  Serious: Yes (Death, Other)
  Sender: MERCK
  Company Number: None

PATIENT

DRUGS (1)
  1. KEYTRUDA [Suspect]
     Active Substance: PEMBROLIZUMAB

REACTIONS (6)
  - Asthenia [Fatal]
  - Confusional state [Fatal]
  - Dysstasia [Fatal]
  - Gait disturbance [Fatal]
  - Mental impairment [Fatal]
  - Neoplasm progression [Fatal]
